FAERS Safety Report 15680241 (Version 1)
Quarter: 2018Q4

REPORT INFORMATION
  Report Type: Spontaneous
  Country: US (occurrence: US)
  Receive Date: 20181120
  Receipt Date: 20181120
  Transmission Date: 20190205
  Serious: Yes (Disabling)
  Sender: FDA-Public Use
  Company Number: None

PATIENT
  Sex: Female

DRUGS (1)
  1. NEXPLANON [Suspect]
     Active Substance: ETONOGESTREL

REACTIONS (9)
  - Arthritis [None]
  - Anxiety [None]
  - Depression [None]
  - Hallucination, auditory [None]
  - Amnesia [None]
  - Weight decreased [None]
  - Somnolence [None]
  - Vertigo [None]
  - Cerebral calcification [None]

NARRATIVE: CASE EVENT DATE: 20180722
